FAERS Safety Report 6328309-5 (Version None)
Quarter: 2009Q3

REPORT INFORMATION
  Report Type: 
  Country: None (occurrence: None)
  Receive Date: 20090825
  Receipt Date: 20090717
  Transmission Date: 20100115
  Serious: No
  Sender: FDA-Public Use
  Company Number: US-ABBOTT-09P-163-0573021-00

PATIENT
  Sex: Female
  Weight: 62.652 kg

DRUGS (5)
  1. SYNTHROID [Suspect]
     Indication: HYPOTHYROIDISM
     Dosage: LOCAL PHARMACY
     Dates: start: 19750101
  2. SYNTHROID [Suspect]
     Dates: start: 20090401
  3. VITAMIN E [Concomitant]
     Indication: DRUG USE FOR UNKNOWN INDICATION
  4. CALCIUM [Concomitant]
     Indication: DRUG USE FOR UNKNOWN INDICATION
  5. TRIAMCINOLONE ACETONIDE [Concomitant]
     Indication: LICHEN SCLEROSUS
     Route: 061

REACTIONS (11)
  - FLUSHING [None]
  - HEADACHE [None]
  - HYPERHIDROSIS [None]
  - LIP SWELLING [None]
  - MALAISE [None]
  - NERVOUSNESS [None]
  - OEDEMA PERIPHERAL [None]
  - PAIN IN EXTREMITY [None]
  - PALPITATIONS [None]
  - SKIN BURNING SENSATION [None]
  - SWOLLEN TONGUE [None]
